FAERS Safety Report 19357414 (Version 2)
Quarter: 2021Q3

REPORT INFORMATION
  Report Type: Report from Study
  Country: CA (occurrence: CA)
  Receive Date: 20210601
  Receipt Date: 20210712
  Transmission Date: 20211014
  Serious: Yes (Other)
  Sender: FDA-Public Use
  Company Number: CA-JNJFOC-20210135394

PATIENT
  Age: 63 Year
  Sex: Male
  Weight: 66 kg

DRUGS (8)
  1. DELTRON [Concomitant]
     Indication: PRODUCT USED FOR UNKNOWN INDICATION
     Route: 065
  2. REMICADE [Suspect]
     Active Substance: INFLIXIMAB
     Indication: CROHN^S DISEASE
     Route: 042
  3. LYRICA [Concomitant]
     Active Substance: PREGABALIN
     Indication: PRODUCT USED FOR UNKNOWN INDICATION
     Route: 065
  4. PANTOLOC [PANTOPRAZOLE SODIUM SESQUIHYDRATE] [Concomitant]
     Active Substance: PANTOPRAZOLE SODIUM
     Indication: PRODUCT USED FOR UNKNOWN INDICATION
     Route: 065
  5. DILAUDID [Concomitant]
     Active Substance: HYDROMORPHONE HYDROCHLORIDE
     Indication: PRODUCT USED FOR UNKNOWN INDICATION
     Route: 065
  6. REMICADE [Suspect]
     Active Substance: INFLIXIMAB
     Route: 042
  7. METHOTREXATE. [Concomitant]
     Active Substance: METHOTREXATE
     Indication: PRODUCT USED FOR UNKNOWN INDICATION
     Route: 065
  8. ACIDE FOLIQUE [Concomitant]
     Active Substance: FOLIC ACID
     Indication: PRODUCT USED FOR UNKNOWN INDICATION
     Route: 065

REACTIONS (7)
  - Abdominal pain [Recovered/Resolved]
  - Fatigue [Not Recovered/Not Resolved]
  - Ulcer haemorrhage [Not Recovered/Not Resolved]
  - Thyroid disorder [Unknown]
  - Joint injury [Recovering/Resolving]
  - Haemorrhoids [Not Recovered/Not Resolved]
  - Faeces soft [Unknown]

NARRATIVE: CASE EVENT DATE: 20210121
